FAERS Safety Report 16317452 (Version 3)
Quarter: 2019Q3

REPORT INFORMATION
  Report Type: Report from Study
  Country: US (occurrence: US)
  Receive Date: 20190516
  Receipt Date: 20190923
  Transmission Date: 20191004
  Serious: No
  Sender: FDA-Public Use
  Company Number: PHEH2019US020622

PATIENT
  Sex: Male

DRUGS (1)
  1. COSENTYX [Suspect]
     Active Substance: SECUKINUMAB
     Indication: PRODUCT USED FOR UNKNOWN INDICATION
     Dosage: 300 MG (150 MG X 2), UNK
     Route: 065

REACTIONS (4)
  - Infection [Unknown]
  - Impaired healing [Unknown]
  - Psoriasis [Unknown]
  - Wrist fracture [Unknown]
